FAERS Safety Report 6365626-7 (Version None)
Quarter: 2009Q3

REPORT INFORMATION
  Report Type: 
  Country: None (occurrence: None)
  Receive Date: 20090919
  Receipt Date: 20090821
  Transmission Date: 20100115
  Serious: No
  Sender: FDA-Public Use
  Company Number: US-ABBOTT-09P-163-0592858-00

PATIENT
  Sex: Male

DRUGS (4)
  1. HUMIRA [Suspect]
     Indication: CROHN'S DISEASE
     Dosage: DAY 15
     Dates: start: 20090722
  2. IMURAN [Concomitant]
     Indication: DRUG USE FOR UNKNOWN INDICATION
  3. PENTASA [Concomitant]
     Indication: DRUG USE FOR UNKNOWN INDICATION
  4. PRILOSEC [Concomitant]
     Indication: DRUG USE FOR UNKNOWN INDICATION

REACTIONS (1)
  - HEADACHE [None]
